FAERS Safety Report 11888930 (Version 4)
Quarter: 2016Q2

REPORT INFORMATION
  Report Type: Spontaneous
  Country: US (occurrence: US)
  Receive Date: 20160105
  Receipt Date: 20160426
  Transmission Date: 20160815
  Serious: Yes (Hospitalization)
  Sender: FDA-Public Use
  Company Number: US-PFIZER INC-2015435950

PATIENT
  Age: 71 Year
  Sex: Male
  Weight: 79 kg

DRUGS (2)
  1. NITROSTAT [Suspect]
     Active Substance: NITROGLYCERIN
     Indication: CHEST PAIN
     Dosage: 0.4 MG, AS NEEDED, 1 TABLET EVERY 3 MINUTES
     Route: 060
     Dates: start: 1980
  2. NITROSTAT [Suspect]
     Active Substance: NITROGLYCERIN
     Indication: ANGINA PECTORIS

REACTIONS (2)
  - Drug effect delayed [Recovered/Resolved]
  - Product solubility abnormal [Recovered/Resolved]

NARRATIVE: CASE EVENT DATE: 20151205
